FAERS Safety Report 22768190 (Version 4)
Quarter: 2024Q1

REPORT INFORMATION
  Report Type: Spontaneous
  Country: US (occurrence: US)
  Receive Date: 20230731
  Receipt Date: 20240123
  Transmission Date: 20240410
  Serious: Yes (Hospitalization)
  Sender: FDA-Public Use
  Company Number: US-SA-SAC20230728001085

PATIENT
  Age: 54 Year
  Sex: Female

DRUGS (2)
  1. DUPIXENT [Suspect]
     Active Substance: DUPILUMAB
     Indication: Asthma
     Dosage: 400 MG, 1X
     Route: 058
     Dates: start: 20230705, end: 20230705
  2. DUPIXENT [Suspect]
     Active Substance: DUPILUMAB
     Dosage: 200 MG, QOW
     Route: 058
     Dates: start: 20230719

REACTIONS (15)
  - Asthma [Unknown]
  - Product dose omission issue [Not Recovered/Not Resolved]
  - Pruritus [Not Recovered/Not Resolved]
  - Skin exfoliation [Not Recovered/Not Resolved]
  - Conjunctivitis [Recovering/Resolving]
  - Eye discharge [Recovering/Resolving]
  - Ocular hyperaemia [Recovering/Resolving]
  - Dry eye [Recovering/Resolving]
  - Arthralgia [Recovering/Resolving]
  - Dry eye [Not Recovered/Not Resolved]
  - Vision blurred [Recovered/Resolved]
  - Eye pain [Recovered/Resolved]
  - Headache [Recovered/Resolved]
  - Anxiety [Recovered/Resolved]
  - Eyelid margin crusting [Not Recovered/Not Resolved]

NARRATIVE: CASE EVENT DATE: 20230701
